FAERS Safety Report 4996572-9 (Version None)
Quarter: 2006Q2

REPORT INFORMATION
  Report Type: 
  Country: None (occurrence: None)
  Receive Date: 20060505
  Receipt Date: 20060420
  Transmission Date: 20061013
  Serious: Yes (Life-Threatening, Hospitalization)
  Sender: FDA-Public Use
  Company Number: 2006US002977

PATIENT
  Age: 84 Year
  Sex: Female
  Weight: 44.9 kg

DRUGS (6)
  1. ALOXI (PALONOSETROR HYDROCHLORIDE) INJECTION, 0.25MG/5ML [Suspect]
     Indication: PROPHYLAXIS OF NAUSEA AND VOMITING
     Dosage: 0.25 MG, SINGLE, INTRAVENOUS
     Route: 042
     Dates: start: 20051205, end: 20051205
  2. CARBOPLATIN [Suspect]
     Indication: OVARIAN CANCER METASTATIC
     Dosage: 300 MG, Q3WK, INTRAVENOUS; 0.25 MG, SINGLE, IV BOLUS
     Route: 042
     Dates: start: 20051114, end: 20051114
  3. CARBOPLATIN [Suspect]
     Indication: OVARIAN CANCER METASTATIC
     Dosage: 300 MG, Q3WK, INTRAVENOUS; 0.25 MG, SINGLE, IV BOLUS
     Route: 042
     Dates: end: 20051205
  4. FOLIC ACID [Concomitant]
  5. LIPITOR [Concomitant]
  6. SODIUM CHLORIDE [Concomitant]

REACTIONS (2)
  - ANAPHYLACTIC REACTION [None]
  - DRUG HYPERSENSITIVITY [None]
